FAERS Safety Report 4314468-2 (Version None)
Quarter: 2004Q1

REPORT INFORMATION
  Report Type: 
  Country: None (occurrence: None)
  Receive Date: 20040308
  Receipt Date: 20040302
  Transmission Date: 20041129
  Serious: Yes (Hospitalization)
  Sender: FDA-Public Use
  Company Number: 2004-02-1709

PATIENT
  Age: 59 Year
  Sex: Female

DRUGS (1)
  1. CLARITIN [Suspect]
     Dosage: UNKNOWN; ORAL
     Route: 048

REACTIONS (1)
  - HEPATITIS [None]
